FAERS Safety Report 10997244 (Version 1)
Quarter: 2015Q2

REPORT INFORMATION
  Report Type: Spontaneous
  Country: US (occurrence: None)
  Receive Date: 20150407
  Receipt Date: 20150407
  Transmission Date: 20150821
  Serious: No
  Sender: FDA-Public Use
  Company Number: None

PATIENT
  Age: 60 Year
  Sex: Female
  Weight: 70.76 kg

DRUGS (11)
  1. BABY ASPIRIN [Concomitant]
     Active Substance: ASPIRIN
  2. VIT D3 2000 [Concomitant]
  3. PROBIOTIC [Concomitant]
     Active Substance: PROBIOTICS NOS
  4. LAMOTRIGINE. [Concomitant]
     Active Substance: LAMOTRIGINE
  5. ZONISAMIDE. [Suspect]
     Active Substance: ZONISAMIDE
     Indication: SEIZURE
     Dosage: DAILY AT BEDTIME
     Route: 048
     Dates: start: 2007, end: 20150131
  6. CENTRUM SILVER VITAMIN [Concomitant]
  7. AMOXICILLIN. [Concomitant]
     Active Substance: AMOXICILLIN
  8. ASPIRIN. [Concomitant]
     Active Substance: ASPIRIN
  9. VITAMIN D [Concomitant]
     Active Substance: CHOLECALCIFEROL
  10. PROBIOTIC COLON SUPPORT [Concomitant]
  11. CALCIUM (CITRACAL VIT D) [Concomitant]

REACTIONS (22)
  - Walking aid user [None]
  - Fall [None]
  - Decreased appetite [None]
  - Peripheral swelling [None]
  - Therapy responder [None]
  - Pain in extremity [None]
  - Paraesthesia [None]
  - Wheezing [None]
  - Insomnia [None]
  - Fracture [None]
  - Hypoaesthesia [None]
  - Dizziness [None]
  - Myalgia [None]
  - Muscular weakness [None]
  - Productive cough [None]
  - Seizure [None]
  - Cervical vertebral fracture [None]
  - Fatigue [None]
  - Memory impairment [None]
  - Limb discomfort [None]
  - Hyperhidrosis [None]
  - Femur fracture [None]

NARRATIVE: CASE EVENT DATE: 201411
